FAERS Safety Report 8799237 (Version 1)
Quarter: 2012Q4

REPORT INFORMATION
  Report Type: 
  Country: ZA (occurrence: ZA)
  Receive Date: 20120920
  Receipt Date: 20120920
  Transmission Date: 20130627
  Serious: Yes (Other)
  Sender: FDA-Public Use
  Company Number: ZA-PFIZER INC-2012231954

PATIENT
  Age: 43 Year
  Sex: Male

DRUGS (2)
  1. CHAMPIX [Suspect]
     Dosage: UNK
     Route: 048
  2. NEXIUM [Concomitant]
     Dosage: UNK
     Route: 048

REACTIONS (3)
  - Suicidal ideation [Unknown]
  - Road traffic accident [Unknown]
  - Cognitive disorder [Unknown]
